FAERS Safety Report 6230320-X (Version None)
Quarter: 2009Q2

REPORT INFORMATION
  Report Type: 
  Country: None (occurrence: None)
  Receive Date: 20090611
  Receipt Date: 20090604
  Transmission Date: 20091009
  Serious: Yes (Other)
  Sender: FDA-Public Use
  Company Number: 2009VX001004

PATIENT
  Age: 63 Year
  Sex: Male

DRUGS (4)
  1. FLUCYTOSINE [Suspect]
     Indication: DISSEMINATED CRYPTOCOCCOSIS
     Dosage: IV
     Route: 042
  2. FLUCYTOSINE [Suspect]
     Indication: DISSEMINATED CRYPTOCOCCOSIS
     Dosage: IV
     Route: 042
  3. AMPHOTERICIN B [Suspect]
     Indication: DISSEMINATED CRYPTOCOCCOSIS
     Dosage: IV
     Route: 042
  4. AMPHOTERICIN B [Suspect]
     Indication: DISSEMINATED CRYPTOCOCCOSIS
     Dosage: IV
     Route: 042

REACTIONS (1)
  - DRUG INEFFECTIVE [None]
